FAERS Safety Report 6787303-0 (Version None)
Quarter: 2010Q2

REPORT INFORMATION
  Report Type: 
  Country: None (occurrence: None)
  Receive Date: 20100623
  Receipt Date: 20070523
  Transmission Date: 20101027
  Serious: No
  Sender: FDA-Public Use
  Company Number: US-PFIZER INC-2007020701

PATIENT
  Sex: Female

DRUGS (1)
  1. DEPO-PROVERA SUSPENSION/INJ [Suspect]
     Dates: start: 20060701, end: 20060701

REACTIONS (7)
  - ACNE [None]
  - ANXIETY [None]
  - DEPRESSION [None]
  - DYSPAREUNIA [None]
  - HEART RATE IRREGULAR [None]
  - METRORRHAGIA [None]
  - RED BLOOD CELL COUNT DECREASED [None]
